FAERS Safety Report 7472499-8 (Version None)
Quarter: 2011Q2

REPORT INFORMATION
  Report Type: 
  Country: None (occurrence: None)
  Receive Date: 20110502
  Receipt Date: 20110419
  Transmission Date: 20111010
  Serious: Yes (Hospitalization)
  Sender: FDA-Public Use
  Company Number: 2011MA004638

PATIENT
  Age: 31 Year
  Sex: Female

DRUGS (9)
  1. GLICLAZIDE [Concomitant]
  2. INSULIN GLARGINE [Concomitant]
  3. ACYCLOVIR [Suspect]
     Indication: HERPES ZOSTER
     Dosage: 10 MG/KG; TID;
     Dates: start: 20110401
  4. CEPHALEXIN [Suspect]
     Indication: INFECTION
     Dosage: 500 MG; BID;
     Dates: start: 20110331
  5. SIMVASTATIN [Concomitant]
  6. NOVORAPID [Concomitant]
  7. CAMPATH [Suspect]
     Indication: MULTIPLE SCLEROSIS
     Dosage: 12 MG; QD; IV
     Route: 042
     Dates: start: 20110328, end: 20110331
  8. METFORMIN [Concomitant]
  9. LEVOTHYROXINE SODIUM [Concomitant]

REACTIONS (2)
  - HERPES ZOSTER [None]
  - ALANINE AMINOTRANSFERASE INCREASED [None]
